FAERS Safety Report 14633394 (Version 3)
Quarter: 2018Q2

REPORT INFORMATION
  Report Type: Report from Study
  Country: DE (occurrence: DE)
  Receive Date: 20180313
  Receipt Date: 20180627
  Transmission Date: 20180711
  Serious: Yes (Hospitalization)
  Sender: FDA-Public Use
  Company Number: DE-ALEXION PHARMACEUTICALS INC.-A201802689

PATIENT
  Age: 16 Year
  Sex: Female
  Weight: 45 kg

DRUGS (11)
  1. OTRIVEN [Concomitant]
     Active Substance: XYLOMETAZOLINE HYDROCHLORIDE
     Indication: PRODUCT USED FOR UNKNOWN INDICATION
     Dosage: UNK, PRN
     Route: 045
  2. ECULIZUMAB [Suspect]
     Active Substance: ECULIZUMAB
     Dosage: 1200 MG, Q2W
     Route: 065
     Dates: start: 20160721
  3. ACYCLOVIR                          /00587301/ [Concomitant]
     Active Substance: ACYCLOVIR
     Indication: PRODUCT USED FOR UNKNOWN INDICATION
     Route: 065
  4. ECULIZUMAB [Suspect]
     Active Substance: ECULIZUMAB
     Dosage: 600 MG, Q2W
     Route: 065
     Dates: start: 20110901, end: 20130801
  5. DOXYCYCLINE. [Concomitant]
     Active Substance: DOXYCYCLINE
     Indication: PNEUMONIA
     Dosage: 100 MG, UNK
     Route: 065
     Dates: end: 20180317
  6. CEFUROXIME. [Concomitant]
     Active Substance: CEFUROXIME
     Indication: PNEUMONIA
     Dosage: UNK
     Route: 065
  7. VALSARTAN. [Concomitant]
     Active Substance: VALSARTAN
     Indication: PRODUCT USED FOR UNKNOWN INDICATION
     Dosage: 60 MG, QD
     Route: 065
  8. CLEXANE [Concomitant]
     Active Substance: ENOXAPARIN SODIUM
     Indication: IMMOBILE
     Dosage: UNK, QD
     Route: 058
  9. ECULIZUMAB [Suspect]
     Active Substance: ECULIZUMAB
     Dosage: 900 MG, Q2W
     Route: 065
     Dates: start: 20130801, end: 20160721
  10. SALBUTAMOL [Concomitant]
     Active Substance: ALBUTEROL
     Indication: PRODUCT USED FOR UNKNOWN INDICATION
     Dosage: UNK
     Route: 045
  11. ECULIZUMAB [Suspect]
     Active Substance: ECULIZUMAB
     Indication: ATYPICAL HAEMOLYTIC URAEMIC SYNDROME
     Dosage: 600 MG, QW
     Route: 065
     Dates: start: 20110805, end: 20110818

REACTIONS (1)
  - Meningitis [Recovered/Resolved]

NARRATIVE: CASE EVENT DATE: 20180228
